FAERS Safety Report 7290366-X (Version None)
Quarter: 2011Q1

REPORT INFORMATION
  Report Type: 
  Country: None (occurrence: None)
  Receive Date: 20110131
  Receipt Date: 20110117
  Transmission Date: 20110831
  Serious: Yes (Hospitalization)
  Sender: FDA-Public Use
  Company Number: DSU-2011-00399

PATIENT
  Sex: Female

DRUGS (1)
  1. BENICAR [Suspect]
     Indication: HYPERTENSION
     Dosage: 20 MG (20 MG, QD), PER ORAL
     Route: 048
     Dates: start: 20101101, end: 20110116

REACTIONS (9)
  - COUGH [None]
  - CHEST DISCOMFORT [None]
  - OEDEMA PERIPHERAL [None]
  - DIZZINESS [None]
  - HEADACHE [None]
  - SWELLING FACE [None]
  - DRY EYE [None]
  - HYPOAESTHESIA [None]
  - MUSCLE DISORDER [None]
